FAERS Safety Report 7322803-6 (Version None)
Quarter: 2011Q1

REPORT INFORMATION
  Report Type: 
  Country: None (occurrence: None)
  Receive Date: 20110216
  Receipt Date: 20110204
  Transmission Date: 20110831
  Serious: Yes (Death)
  Sender: FDA-Public Use
  Company Number: TRP_07553_2011

PATIENT
  Age: 3 Year
  Sex: Female

DRUGS (7)
  1. G-CSF (G-CSF) [Suspect]
     Indication: NEUTROPENIA
     Dosage: (5 ?G/KG QD)
  2. ACYCLOVIR [Suspect]
     Indication: ANTIVIRAL TREATMENT
     Dosage: (1500 MG/M2 QD)
  3. AMPHOTERICIN B [Suspect]
     Indication: ANTIVIRAL TREATMENT
     Dosage: (5 MG/KG PER DAY)
  4. IMMUNE GLOBULIN (HUMAN) [Suspect]
     Indication: IMMUNOGLOBULIN THERAPY
     Dosage: (400 MG/KG 1X/MONTH INTRAVENOUS)
     Route: 042
  5. PNEUMOCYSTIS CARINII PROPHYLAXIS [Suspect]
     Indication: ANTIFUNGAL PROPHYLAXIS
     Dosage: (DF)
  6. BROAD SPECTRUM ANTIBIOTICS [Suspect]
     Indication: MYCOBACTERIAL INFECTION
     Dosage: (DF)
  7. URSODIOL [Suspect]
     Indication: PRODUCT USED FOR UNKNOWN INDICATION
     Dosage: (20 MG/KG QD)

REACTIONS (9)
  - LYMPHADENITIS [None]
  - PNEUMONIA [None]
  - PULMONARY TUBERCULOSIS [None]
  - CHOLANGITIS [None]
  - GENERAL PHYSICAL HEALTH DETERIORATION [None]
  - NO THERAPEUTIC RESPONSE [None]
  - NEUTROPENIA [None]
  - LYMPHOPENIA [None]
  - DISSEMINATED TUBERCULOSIS [None]
